FAERS Safety Report 5536995-2 (Version None)
Quarter: 2007Q4

REPORT INFORMATION
  Report Type: 
  Country: None (occurrence: None)
  Receive Date: 20071207
  Receipt Date: 20071130
  Transmission Date: 20080405
  Serious: Yes (Death, Other)
  Sender: FDA-Public Use
  Company Number: JP-BRISTOL-MYERS SQUIBB COMPANY-13945233

PATIENT
  Age: 2 Year
  Sex: Male

DRUGS (19)
  1. CYCLOPHOSPHAMIDE [Suspect]
     Indication: BONE MARROW CONDITIONING REGIMEN
     Route: 041
     Dates: start: 20060607, end: 20060610
  2. FLUDARA [Suspect]
     Indication: BONE MARROW CONDITIONING REGIMEN
     Route: 041
     Dates: start: 20060602, end: 20060607
  3. MABLIN [Suspect]
     Indication: BONE MARROW CONDITIONING REGIMEN
     Dosage: CHANGED FROM 20 MG TO 80 MG.
     Dates: start: 20060602, end: 20060605
  4. PROGRAF [Suspect]
     Indication: PROPHYLAXIS AGAINST GRAFT VERSUS HOST DISEASE
  5. MEROPEN [Suspect]
  6. PREDONINE [Suspect]
     Indication: ACUTE GRAFT VERSUS HOST DISEASE
     Dosage: 30 MG - 01-JUL-2006 TO 03-JUL-2006; DOSE REDUCED TO 15 MG - 04-JUL-2006 - 07-JUL-2006.
     Route: 042
     Dates: start: 20060701, end: 20060707
  7. ZOVIRAX [Suspect]
  8. METHOTREXATE [Concomitant]
  9. RIVOTRIL [Concomitant]
     Dates: start: 20060531, end: 20060610
  10. SALOBEL [Concomitant]
     Dates: start: 20060531
  11. URSO 250 [Concomitant]
     Dates: start: 20060531
  12. CALCIUM LACTATE [Concomitant]
     Dates: start: 20060603
  13. HEPARIN [Concomitant]
     Dates: start: 20060525
  14. MEYLON [Concomitant]
     Dates: start: 20060525
  15. KYTRIL [Concomitant]
     Dates: start: 20060602
  16. UROMITEXAN [Concomitant]
     Dates: start: 20060607
  17. IMMUNE GLOBULIN INTRAVENOUS (HUMAN) [Concomitant]
     Dates: start: 20060608
  18. BIOFERMIN [Concomitant]
     Dates: start: 20060529
  19. SOLITA-T [Concomitant]
     Dates: start: 20060525

REACTIONS (3)
  - ACUTE GRAFT VERSUS HOST DISEASE [None]
  - ALOPECIA [None]
  - CARDIAC FAILURE [None]
